FAERS Safety Report 13355279 (Version 1)
Quarter: 2017Q1

REPORT INFORMATION
  Report Type: Spontaneous
  Country: CN (occurrence: CN)
  Receive Date: 20170321
  Receipt Date: 20170321
  Transmission Date: 20170429
  Serious: Yes (Hospitalization)
  Sender: FDA-Public Use
  Company Number: CN-ELI_LILLY_AND_COMPANY-CN201703006147

PATIENT
  Age: 71 Year
  Sex: Female
  Weight: 82.5 kg

DRUGS (1)
  1. HUMALOG MIX50/50 [Suspect]
     Active Substance: INSULIN LISPRO
     Indication: DIABETES MELLITUS
     Dosage: UNK
     Route: 058

REACTIONS (2)
  - Hypertension [Unknown]
  - Coronary artery disease [Unknown]

NARRATIVE: CASE EVENT DATE: 2015
